FAERS Safety Report 17759264 (Version 1)
Quarter: 2020Q2

REPORT INFORMATION
  Report Type: Spontaneous
  Country: US (occurrence: US)
  Receive Date: 20200508
  Receipt Date: 20200508
  Transmission Date: 20200714
  Serious: No
  Sender: FDA-Public Use
  Company Number: US-BAUSCH-BL-2020-012294

PATIENT
  Age: 80 Year
  Sex: Female

DRUGS (2)
  1. ONEXTON [Suspect]
     Active Substance: BENZOYL PEROXIDE\CLINDAMYCIN PHOSPHATE
     Indication: ACNE
     Dosage: FORM STRENGTH: 1.2 PERCENT/3.75 PERCENT
     Route: 061
  2. ONEXTON [Suspect]
     Active Substance: BENZOYL PEROXIDE\CLINDAMYCIN PHOSPHATE
     Dosage: 5 PUMPS OF THE PRODUCT ALL OVER HER FACE?FORM STRENGTH: 1.2 PERCENT/3.75 PERCENT
     Route: 061
     Dates: start: 20200422, end: 20200423

REACTIONS (5)
  - Swelling face [Not Recovered/Not Resolved]
  - Expired product administered [Unknown]
  - Extra dose administered [Unknown]
  - Skin burning sensation [Not Recovered/Not Resolved]
  - Erythema [Unknown]

NARRATIVE: CASE EVENT DATE: 20200422
